FAERS Safety Report 12181666 (Version 1)
Quarter: 2016Q1

REPORT INFORMATION
  Report Type: Spontaneous
  Country: DE (occurrence: DE)
  Receive Date: 20160315
  Receipt Date: 20160315
  Transmission Date: 20160526
  Serious: Yes (Death)
  Sender: FDA-Public Use
  Company Number: DE-ASTRAZENECA-2015SF22871

PATIENT
  Sex: Male
  Weight: 13 kg

DRUGS (1)
  1. MOVENTIG [Suspect]
     Active Substance: NALOXEGOL OXALATE
     Dosage: UNKNOWN
     Route: 048

REACTIONS (3)
  - Off label use [Unknown]
  - Death [Fatal]
  - Wrong technique in product usage process [Unknown]
